FAERS Safety Report 5884884-6 (Version None)
Quarter: 2008Q3

REPORT INFORMATION
  Report Type: 
  Country: None (occurrence: None)
  Receive Date: 20080912
  Receipt Date: 20080903
  Transmission Date: 20090109
  Serious: Yes (Hospitalization, Other)
  Sender: FDA-Public Use
  Company Number: APP200800777

PATIENT
  Sex: Female

DRUGS (1)
  1. DIPRIVAN [Suspect]
     Indication: ENDOSCOPY
     Dosage: UNK, ONCE, INTRAVENOUS
     Route: 042
     Dates: start: 20070101, end: 20070101

REACTIONS (2)
  - DRUG ADMINISTRATION ERROR [None]
  - HEPATITIS C [None]
